FAERS Safety Report 9256500 (Version 2)
Quarter: 2013Q2

REPORT INFORMATION
  Report Type: Report from Study
  Country: RU (occurrence: RU)
  Receive Date: 20130426
  Receipt Date: 20130430
  Transmission Date: 20140414
  Serious: Yes (Other)
  Sender: FDA-Public Use
  Company Number: RU-ROCHE-1075632

PATIENT
  Age: 77 Year
  Sex: Male
  Weight: 73 kg

DRUGS (7)
  1. BEVACIZUMAB [Suspect]
     Indication: METASTATIC NEOPLASM
     Route: 042
     Dates: start: 20111209
  2. 5-FU [Suspect]
     Indication: METASTATIC NEOPLASM
     Route: 065
     Dates: start: 20111209, end: 20111223
  3. 5-FU [Suspect]
     Dosage: RESTARTED
     Route: 065
  4. FOLINIC ACID [Suspect]
     Indication: METASTATIC NEOPLASM
     Route: 065
     Dates: start: 20111209, end: 20111223
  5. FOLINIC ACID [Suspect]
     Dosage: RESTARTED
     Route: 065
  6. OXALIPLATIN [Suspect]
     Indication: METASTATIC NEOPLASM
     Route: 065
     Dates: start: 20111209, end: 20111223
  7. OXALIPLATIN [Suspect]
     Dosage: RESTARTED
     Route: 065

REACTIONS (2)
  - Diarrhoea [Recovered/Resolved]
  - Disease progression [Not Recovered/Not Resolved]
